FAERS Safety Report 11158461 (Version 1)
Quarter: 2015Q2

REPORT INFORMATION
  Report Type: Report from Study
  Country: CA (occurrence: CA)
  Receive Date: 20150603
  Receipt Date: 20150603
  Transmission Date: 20150821
  Serious: Yes (Other)
  Sender: FDA-Public Use
  Company Number: CA-BAYER-2015-291959

PATIENT
  Age: 51 Year
  Sex: Female

DRUGS (9)
  1. ADVIL [IBUPROFEN] [Concomitant]
     Active Substance: IBUPROFEN
     Dosage: 400 MG, PRN
  2. BACLOFEN. [Concomitant]
     Active Substance: BACLOFEN
     Dosage: 15 MG, QD
  3. NAPROXEN. [Concomitant]
     Active Substance: NAPROXEN
     Dosage: UNK UNK, PRN
  4. VITAMIN D [Concomitant]
     Active Substance: CHOLECALCIFEROL
     Dosage: 4000 IU, QD
  5. VITALUX [VIT C,BETACAROT,CU+,B2,SE+,TOCOFERSOLAN,ZN+] [Concomitant]
     Dosage: UNK
  6. BETASERON [Suspect]
     Active Substance: INTERFERON BETA-1B
     Indication: MULTIPLE SCLEROSIS
     Dosage: 0.25 MG, UNK
     Dates: start: 20080701
  7. MELOXICAM. [Concomitant]
     Active Substance: MELOXICAM
     Dosage: UNK UNK, PRN
  8. GABAPENTIN. [Concomitant]
     Active Substance: GABAPENTIN
     Dosage: 3600 MG, QD
  9. TYLENOL [Concomitant]
     Active Substance: ACETAMINOPHEN
     Dosage: UNK UNK, PRN

REACTIONS (3)
  - Abasia [Unknown]
  - Gait disturbance [Unknown]
  - Injection site pain [Unknown]

NARRATIVE: CASE EVENT DATE: 200807
